FAERS Safety Report 9126611 (Version 1)
Quarter: 2013Q1

REPORT INFORMATION
  Report Type: Spontaneous
  Country: US (occurrence: None)
  Receive Date: 20130130
  Receipt Date: 20130130
  Transmission Date: 20140127
  Serious: Yes (Death)
  Sender: FDA-Public Use
  Company Number: B0859503A

PATIENT
  Age: 45 Year
  Sex: Female

DRUGS (5)
  1. BUPROPION HYDROCHLORIDE [Suspect]
     Route: 048
  2. PAROXETINE HYDROCHLORIDE [Suspect]
     Route: 048
  3. METHAMPHETAMINE HYDROCHLORIDE [Suspect]
     Route: 048
  4. PHENCYCLIDINE HYDROCHLORIDE [Suspect]
     Route: 048
  5. BENZODIAZEPINES [Suspect]
     Route: 048

REACTIONS (1)
  - Completed suicide [None]
